FAERS Safety Report 4296651-8 (Version None)
Quarter: 2004Q1

REPORT INFORMATION
  Report Type: 
  Country: None (occurrence: None)
  Receive Date: 20040217
  Receipt Date: 20040119
  Transmission Date: 20041129
  Serious: Yes (Hospitalization)
  Sender: FDA-Public Use
  Company Number: JP-ROCHE-356229

PATIENT
  Age: 35 Year
  Sex: Male
  Weight: 58.7 kg

DRUGS (6)
  1. HORIZON [Suspect]
     Indication: DRUG USE FOR UNKNOWN INDICATION
     Route: 065
     Dates: start: 20020921, end: 20021106
  2. HERBAL MEDICINE [Suspect]
     Indication: CONSTIPATION
     Route: 048
     Dates: start: 20020115, end: 20021106
  3. SULPIRIDE [Suspect]
     Indication: DRUG USE FOR UNKNOWN INDICATION
     Route: 065
     Dates: start: 20020921, end: 20021106
  4. FLUVOXAMINE MALEATE [Suspect]
     Indication: DRUG USE FOR UNKNOWN INDICATION
     Route: 065
     Dates: start: 20020921, end: 20021106
  5. ETIZOLAM [Suspect]
     Indication: DRUG USE FOR UNKNOWN INDICATION
     Route: 065
     Dates: end: 20021106
  6. DAI-SAIKO-TO [Suspect]
     Indication: DRUG USE FOR UNKNOWN INDICATION
     Route: 065
     Dates: start: 20020921, end: 20021106

REACTIONS (6)
  - ASCITES [None]
  - CHOLESTASIS [None]
  - DEPRESSION [None]
  - HEPATIC ATROPHY [None]
  - HEPATIC FAILURE [None]
  - HEPATITIS FULMINANT [None]
